FAERS Safety Report 21748877 (Version 1)
Quarter: 2022Q4

REPORT INFORMATION
  Report Type: Spontaneous
  Country: PT (occurrence: PT)
  Receive Date: 20221219
  Receipt Date: 20221219
  Transmission Date: 20230112
  Serious: Yes (Other)
  Sender: FDA-Public Use
  Company Number: PT-BASI-2022001193

PATIENT

DRUGS (3)
  1. TRAMADOL [Interacting]
     Active Substance: TRAMADOL
     Indication: Analgesic therapy
     Dosage: UNK
     Route: 064
  2. SUFENTANIL [Interacting]
     Active Substance: SUFENTANIL
     Indication: Analgesic therapy
     Dosage: UNK, BOLUS
     Route: 064
  3. ROPIVACAINE [Interacting]
     Active Substance: ROPIVACAINE
     Indication: Analgesic therapy
     Dosage: UNK, MULTIPLE ADMINISTRATIONS OF ROPIVACAINE AT DIFFERENT CONCENTRATIONS
     Route: 064

REACTIONS (3)
  - Bradycardia foetal [Unknown]
  - Foetal exposure during delivery [Unknown]
  - Drug interaction [Unknown]
